FAERS Safety Report 6309020-3 (Version None)
Quarter: 2009Q3

REPORT INFORMATION
  Report Type: 
  Country: None (occurrence: None)
  Receive Date: 20090814
  Receipt Date: 20080118
  Transmission Date: 20100115
  Serious: Yes (Other)
  Sender: FDA-Public Use
  Company Number: US-ASTRAZENECA-2006UW26328

PATIENT
  Age: 26333 Day
  Sex: Male
  Weight: 97.1 kg

DRUGS (17)
  1. SEROQUEL [Suspect]
     Indication: ANXIETY
     Route: 048
     Dates: start: 20050913, end: 20060119
  2. SEROQUEL [Suspect]
     Indication: INSOMNIA
     Route: 048
     Dates: start: 20050913, end: 20060119
  3. SEROQUEL [Suspect]
     Indication: DEPRESSION
     Route: 048
     Dates: start: 20050913, end: 20060119
  4. SEROQUEL [Suspect]
     Indication: SLEEP DISORDER
     Route: 048
     Dates: start: 20050913, end: 20060119
  5. SEROQUEL [Suspect]
     Dosage: 100-150 MG
     Route: 048
     Dates: start: 20050913, end: 20060515
  6. SEROQUEL [Suspect]
     Dosage: 100-150 MG
     Route: 048
     Dates: start: 20050913, end: 20060515
  7. SEROQUEL [Suspect]
     Dosage: 100-150 MG
     Route: 048
     Dates: start: 20050913, end: 20060515
  8. SEROQUEL [Suspect]
     Dosage: 100-150 MG
     Route: 048
     Dates: start: 20050913, end: 20060515
  9. PROTONIX [Concomitant]
     Route: 048
     Dates: start: 20021001, end: 20060515
  10. FLOMAX [Concomitant]
     Indication: BENIGN PROSTATIC HYPERPLASIA
     Dosage: 0.1-0.4 MG
     Dates: start: 20030730
  11. LIPITOR [Concomitant]
     Indication: HYPERLIPIDAEMIA
     Dates: start: 20030730
  12. ATIVAN [Concomitant]
     Indication: ANXIETY
     Dosage: 1-3 MG
     Dates: start: 20040804, end: 20061026
  13. ATIVAN [Concomitant]
     Indication: DEPRESSION
     Dosage: 1-3 MG
     Dates: start: 20040804, end: 20061026
  14. ATIVAN [Concomitant]
     Indication: SLEEP DISORDER
     Dosage: 1-3 MG
     Dates: start: 20040804, end: 20061026
  15. ACEON [Concomitant]
     Indication: HYPERTENSION
     Dates: start: 20040804
  16. AMBIEN [Concomitant]
     Dates: start: 19960101, end: 20061026
  17. AMITRIPTYLINE [Concomitant]
     Dates: start: 20050913

REACTIONS (4)
  - DIABETES MELLITUS INADEQUATE CONTROL [None]
  - DIABETIC NEUROPATHY [None]
  - NEUROPATHY PERIPHERAL [None]
  - TYPE 2 DIABETES MELLITUS [None]
